FAERS Safety Report 6133265-9 (Version None)
Quarter: 2009Q1

REPORT INFORMATION
  Report Type: 
  Country: None (occurrence: None)
  Receive Date: 20090326
  Receipt Date: 20090317
  Transmission Date: 20090719
  Serious: Yes (Death)
  Sender: FDA-Public Use
  Company Number: PE-PFIZER INC-2009183894

PATIENT

DRUGS (4)
  1. LIPITOR [Suspect]
     Indication: DYSLIPIDAEMIA
     Dosage: 40 MG, UNK
     Dates: start: 20080107
  2. PLAVIX [Concomitant]
  3. TEGRETOL [Concomitant]
  4. GLUCOFORT [Suspect]

REACTIONS (1)
  - MYOCARDIAL INFARCTION [None]
